FAERS Safety Report 16430860 (Version 2)
Quarter: 2019Q4

REPORT INFORMATION
  Report Type: Spontaneous
  Country: US (occurrence: US)
  Receive Date: 20190614
  Receipt Date: 20191011
  Transmission Date: 20200122
  Serious: Yes (Other)
  Sender: FDA-Public Use
  Company Number: US-HORIZON-VIM-0231-2019

PATIENT
  Age: 74 Year
  Sex: Male

DRUGS (53)
  1. VIMOVO [Suspect]
     Active Substance: ESOMEPRAZOLE MAGNESIUM\NAPROXEN
     Indication: PRODUCT USED FOR UNKNOWN INDICATION
     Route: 048
     Dates: start: 2006, end: 2019
  2. NEXIUM [Suspect]
     Active Substance: ESOMEPRAZOLE MAGNESIUM
     Indication: GASTROOESOPHAGEAL REFLUX DISEASE
     Route: 048
     Dates: start: 2006, end: 2019
  3. OSELTAMIVIR [Concomitant]
     Active Substance: OSELTAMIVIR
  4. VIMOVO [Suspect]
     Active Substance: ESOMEPRAZOLE MAGNESIUM\NAPROXEN
     Indication: GASTROOESOPHAGEAL REFLUX DISEASE
     Route: 048
     Dates: start: 2011, end: 2015
  5. VIMOVO [Suspect]
     Active Substance: ESOMEPRAZOLE MAGNESIUM\NAPROXEN
     Indication: GASTROOESOPHAGEAL REFLUX DISEASE
     Dosage: 500-20 MG
     Route: 048
     Dates: start: 20120228
  6. LISINOPRIL. [Concomitant]
     Active Substance: LISINOPRIL
     Indication: HYPERTENSION
     Dates: start: 2004
  7. SULINDAC. [Concomitant]
     Active Substance: SULINDAC
  8. CEFACLOR. [Concomitant]
     Active Substance: CEFACLOR
  9. CELEBREX [Concomitant]
     Active Substance: CELECOXIB
     Indication: PAIN
     Dates: start: 2003, end: 2004
  10. CETRIZINE [Concomitant]
     Active Substance: CETIRIZINE HYDROCHLORIDE
     Indication: MULTIPLE ALLERGIES
     Dates: start: 2016, end: 2017
  11. CIMETIDINE HYDROCHLORIDE. [Concomitant]
     Active Substance: CIMETIDINE HYDROCHLORIDE
     Dosage: GENERIC CIMETIDINE-2005
     Route: 065
  12. PEPCID [Concomitant]
     Active Substance: FAMOTIDINE
     Dosage: AC (OTC)-2005
     Route: 065
  13. ZOLPIDEM [Concomitant]
     Active Substance: ZOLPIDEM TARTRATE
  14. VOLTAREN [Concomitant]
     Active Substance: DICLOFENAC SODIUM
  15. PIROXICAM. [Concomitant]
     Active Substance: PIROXICAM
  16. SKELAXIN [Concomitant]
     Active Substance: METAXALONE
  17. PRILOSEC [Suspect]
     Active Substance: OMEPRAZOLE MAGNESIUM
     Indication: GASTROOESOPHAGEAL REFLUX DISEASE
     Dosage: 1990S
     Route: 048
     Dates: start: 2006, end: 2019
  18. VIOXX [Concomitant]
     Active Substance: ROFECOXIB
     Indication: ARTHRITIS
     Dates: start: 2001, end: 2002
  19. MONTELUKAST [Concomitant]
     Active Substance: MONTELUKAST SODIUM
     Indication: MULTIPLE ALLERGIES
     Dates: start: 2019
  20. PEPCID [Concomitant]
     Active Substance: FAMOTIDINE
     Dosage: COMPLETE (OTC)-2005
     Route: 065
  21. ZANTAC [Concomitant]
     Active Substance: RANITIDINE HYDROCHLORIDE
     Dosage: GENERIC RANITIDINE-2005
     Route: 065
  22. SERTRALINE [Concomitant]
     Active Substance: SERTRALINE HYDROCHLORIDE
  23. CLINDAMYCIN. [Concomitant]
     Active Substance: CLINDAMYCIN
  24. LEVOFLOXACIN. [Concomitant]
     Active Substance: LEVOFLOXACIN
  25. CRESTOR [Concomitant]
     Active Substance: ROSUVASTATIN CALCIUM
  26. NEXIUM [Suspect]
     Active Substance: ESOMEPRAZOLE MAGNESIUM
     Indication: GASTROOESOPHAGEAL REFLUX DISEASE
     Route: 048
     Dates: start: 2006, end: 2019
  27. PREVPAC [Suspect]
     Active Substance: AMOXICILLIN\CLARITHROMYCIN\LANSOPRAZOLE
     Indication: GASTROOESOPHAGEAL REFLUX DISEASE
     Route: 065
     Dates: start: 20060414
  28. CARVEDILOL. [Concomitant]
     Active Substance: CARVEDILOL
     Indication: HYPERTENSION
     Dates: start: 2019
  29. SULINDAC. [Concomitant]
     Active Substance: SULINDAC
     Indication: ARTHRITIS
     Dates: start: 2003
  30. ALFUZOSIN [Concomitant]
     Active Substance: ALFUZOSIN
  31. EZETIMIBE. [Concomitant]
     Active Substance: EZETIMIBE
  32. PREVPAC [Suspect]
     Active Substance: AMOXICILLIN\CLARITHROMYCIN\LANSOPRAZOLE
     Indication: GASTROOESOPHAGEAL REFLUX DISEASE
     Route: 065
     Dates: start: 20060401
  33. CIMETIDINE HYDROCHLORIDE. [Concomitant]
     Active Substance: CIMETIDINE HYDROCHLORIDE
     Dosage: (PRESCRIPTION)
     Route: 065
  34. PEPCID [Concomitant]
     Active Substance: FAMOTIDINE
     Dosage: GENERIC FAMOTIDINE-2005
     Route: 065
  35. ZETIA [Concomitant]
     Active Substance: EZETIMIBE
  36. DIAZEPAM. [Concomitant]
     Active Substance: DIAZEPAM
  37. FINASTERIDE. [Concomitant]
     Active Substance: FINASTERIDE
  38. TOPROL XL [Concomitant]
     Active Substance: METOPROLOL SUCCINATE
  39. MOBIC [Concomitant]
     Active Substance: MELOXICAM
     Indication: ARTHRITIS
     Dates: start: 2002, end: 2009
  40. LIDOCAINE. [Concomitant]
     Active Substance: LIDOCAINE
     Indication: CARDIAC DISORDER
     Dates: start: 2019
  41. TRAMADOL HYDROCHLORIDE. [Concomitant]
     Active Substance: TRAMADOL HYDROCHLORIDE
  42. ASPIRIN. [Concomitant]
     Active Substance: ASPIRIN
  43. PSYLLIUM [Concomitant]
     Active Substance: PLANTAGO SEED
  44. ACETAMINOPHEN. [Concomitant]
     Active Substance: ACETAMINOPHEN
  45. MECLIZINE [Concomitant]
     Active Substance: MECLIZINE HYDROCHLORIDE
  46. FOSAMAX [Concomitant]
     Active Substance: ALENDRONATE SODIUM
  47. ARHROTEC [Concomitant]
     Indication: ARTHRITIS
     Dates: start: 2005, end: 2011
  48. TAGAMET HB [Concomitant]
     Active Substance: CIMETIDINE
     Dosage: (OTC)-2005
     Route: 065
  49. ZANTAC [Concomitant]
     Active Substance: RANITIDINE HYDROCHLORIDE
     Dosage: 150 (OTC)-2005
     Route: 065
  50. FINASTERIDE. [Concomitant]
     Active Substance: FINASTERIDE
  51. AMLODIPINE [Concomitant]
     Active Substance: AMLODIPINE BESYLATE
  52. DULOXETINE. [Concomitant]
     Active Substance: DULOXETINE
  53. FLECTOR [Concomitant]
     Active Substance: DICLOFENAC EPOLAMINE

REACTIONS (3)
  - Acute kidney injury [Not Recovered/Not Resolved]
  - Renal failure [Unknown]
  - Chronic kidney disease [Not Recovered/Not Resolved]

NARRATIVE: CASE EVENT DATE: 201807
